FAERS Safety Report 8449933-X (Version None)
Quarter: 2012Q2

REPORT INFORMATION
  Report Type: 
  Country: None (occurrence: None)
  Receive Date: 20120620
  Receipt Date: 20120613
  Transmission Date: 20120825
  Serious: Yes (Other)
  Sender: FDA-Public Use
  Company Number: PHHY2012IL051824

PATIENT
  Age: 64 Year
  Sex: Male

DRUGS (2)
  1. SANDOSTATIN LAR [Suspect]
     Dosage: 30 MG ONCE IN EVERY 28 DAYS
     Dates: start: 20120613
  2. SANDOSTATIN LAR [Suspect]
     Indication: CARCINOID TUMOUR
     Dosage: 30 MG ONCE IN EVERY 28 DAYS
     Dates: start: 20090706

REACTIONS (3)
  - GENERAL PHYSICAL HEALTH DETERIORATION [None]
  - METASTASIS [None]
  - NEOPLASM MALIGNANT [None]
